FAERS Safety Report 17596610 (Version 4)
Quarter: 2020Q3

REPORT INFORMATION
  Report Type: Report from Study
  Country: None (occurrence: US)
  Receive Date: 20200330
  Receipt Date: 20200901
  Transmission Date: 20201102
  Serious: Yes (Hospitalization, Other)
  Sender: FDA-Public Use
  Company Number: US-ABBVIE-19K-163-3008884-00

PATIENT
  Age: 63 Year
  Sex: Female
  Weight: 78.09 kg

DRUGS (5)
  1. HUMIRA [Suspect]
     Active Substance: ADALIMUMAB
     Indication: UVEITIS
     Route: 058
  2. HUMIRA [Suspect]
     Active Substance: ADALIMUMAB
     Indication: AUTOIMMUNE DISORDER
  3. HUMIRA [Suspect]
     Active Substance: ADALIMUMAB
     Indication: IRITIS
     Route: 058
     Dates: start: 202002
  4. HUMIRA [Suspect]
     Active Substance: ADALIMUMAB
     Indication: ANKYLOSING SPONDYLITIS
     Route: 058
     Dates: start: 2018, end: 201911
  5. SULFASALAZINE. [Suspect]
     Active Substance: SULFASALAZINE
     Indication: PRODUCT USED FOR UNKNOWN INDICATION
     Route: 065

REACTIONS (17)
  - Tendon rupture [Unknown]
  - Fall [Recovered/Resolved]
  - Rash [Recovered/Resolved]
  - Retinal vein thrombosis [Recovered/Resolved]
  - Eye haemorrhage [Recovering/Resolving]
  - Pulmonary embolism [Unknown]
  - Eye haemorrhage [Not Recovered/Not Resolved]
  - Wrist fracture [Unknown]
  - Implantable cardiac monitor removal [Recovering/Resolving]
  - Uveitis [Not Recovered/Not Resolved]
  - Blindness unilateral [Recovering/Resolving]
  - Loss of consciousness [Recovered/Resolved]
  - Aneurysm [Unknown]
  - Ligament sprain [Unknown]
  - Rotator cuff syndrome [Not Recovered/Not Resolved]
  - Cough [Not Recovered/Not Resolved]
  - Pneumonia [Recovered/Resolved]

NARRATIVE: CASE EVENT DATE: 2018
